FAERS Safety Report 9554345 (Version 2)
Quarter: 2013Q3

REPORT INFORMATION
  Report Type: Report from Study
  Country: US (occurrence: US)
  Receive Date: 20130925
  Receipt Date: 20130925
  Transmission Date: 20140515
  Serious: Yes (Other)
  Sender: FDA-Public Use
  Company Number: US-ABBVIE-13P-163-1109031-00

PATIENT
  Age: 68 Year
  Sex: Male
  Weight: 81.72 kg

DRUGS (5)
  1. HUMIRA [Suspect]
     Indication: RHEUMATOID ARTHRITIS
     Route: 058
     Dates: start: 201205, end: 201210
  2. BENAZEPRIL [Concomitant]
     Indication: HYPERTENSION
     Dosage: 10/12.5MG TOTAL DAILY DOSE
  3. CRESTOR [Concomitant]
     Indication: BLOOD CHOLESTEROL
  4. METHOTREXATE [Concomitant]
     Indication: RHEUMATOID ARTHRITIS
     Dates: start: 2011
  5. FLONASE [Concomitant]
     Indication: PRODUCT USED FOR UNKNOWN INDICATION

REACTIONS (2)
  - Prostatomegaly [Recovered/Resolved]
  - Prostate cancer [Recovered/Resolved]
